FAERS Safety Report 13176941 (Version 1)
Quarter: 2017Q1

REPORT INFORMATION
  Report Type: Spontaneous
  Country: US (occurrence: US)
  Receive Date: 20170201
  Receipt Date: 20170201
  Transmission Date: 20170428
  Serious: Yes (Other)
  Sender: FDA-Public Use
  Company Number: US-BEH-2017077668

PATIENT
  Sex: Female
  Weight: 84.35 kg

DRUGS (19)
  1. BERINERT [Suspect]
     Active Substance: HUMAN C1-ESTERASE INHIBITOR
     Indication: HEREDITARY ANGIOEDEMA
     Dosage: 2000 IU, AS DIRECTED
     Route: 042
     Dates: start: 20150112
  2. DULOXETINE. [Concomitant]
     Active Substance: DULOXETINE
  3. SEROTONIN [Concomitant]
     Active Substance: SEROTONIN
  4. EPIPEN [Concomitant]
     Active Substance: EPINEPHRINE
  5. OXYCODONE HYDROCHLORIDE AND IBUPROFEN [Concomitant]
     Active Substance: IBUPROFEN\OXYCODONE HYDROCHLORIDE
  6. INSULIN GLARGINE [Concomitant]
     Active Substance: INSULIN GLARGINE
  7. LOMOTIL [Concomitant]
     Active Substance: ATROPINE SULFATE\DIPHENOXYLATE HYDROCHLORIDE
  8. RAMIPRIL. [Concomitant]
     Active Substance: RAMIPRIL
  9. HUMALOG [Concomitant]
     Active Substance: INSULIN LISPRO
  10. BERINERT [Suspect]
     Active Substance: HUMAN C1-ESTERASE INHIBITOR
     Dosage: 2000 IU, AS DIRECTED
     Route: 042
  11. ANTI-DIARRHEAL [Concomitant]
     Active Substance: LOPERAMIDE HYDROCHLORIDE
  12. HYDROCODONE BITARTRATE AND ACETAMINOPHEN [Concomitant]
     Active Substance: ACETAMINOPHEN\HYDROCODONE BITARTRATE
  13. ZOLOFT [Concomitant]
     Active Substance: SERTRALINE HYDROCHLORIDE
  14. PANTOPRAZOLE [Concomitant]
     Active Substance: PANTOPRAZOLE SODIUM
  15. GABAPENTIN. [Concomitant]
     Active Substance: GABAPENTIN
  16. HYDROXYCHLOROQUINE [Concomitant]
     Active Substance: HYDROXYCHLOROQUINE
  17. SODIUM CHLORIDE. [Concomitant]
     Active Substance: SODIUM CHLORIDE
  18. DICYCLOMINE                        /00068601/ [Concomitant]
     Active Substance: DICYCLOMINE HYDROCHLORIDE
  19. LEVOTHYROXINE. [Concomitant]
     Active Substance: LEVOTHYROXINE

REACTIONS (2)
  - Hereditary angioedema [Unknown]
  - Peripheral swelling [Unknown]
